FAERS Safety Report 5832638-9 (Version None)
Quarter: 2008Q3

REPORT INFORMATION
  Report Type: 
  Country: None (occurrence: None)
  Receive Date: 20080804
  Receipt Date: 20080725
  Transmission Date: 20090109
  Serious: Yes (Hospitalization, Other)
  Sender: FDA-Public Use
  Company Number: PHHY2008FR15853

PATIENT
  Sex: Female

DRUGS (14)
  1. VOLTAREN [Suspect]
     Indication: PAIN
     Dosage: UNK
     Route: 042
     Dates: start: 20080101, end: 20080203
  2. ASPIRIN [Suspect]
     Indication: PROPHYLAXIS
     Dosage: 1 DF, QD
     Route: 048
     Dates: end: 20080203
  3. SKENAN [Concomitant]
     Indication: PAIN
     Dosage: UNK
     Route: 048
     Dates: start: 20080101, end: 20080203
  4. ACUPAN [Concomitant]
     Indication: PAIN
     Dosage: UNK
     Route: 030
     Dates: start: 20080101, end: 20080203
  5. ADANCOR [Concomitant]
     Indication: ANGINA PECTORIS
     Dosage: 2 TAB/DAY
     Route: 048
     Dates: end: 20080203
  6. FUROSEMIDE [Concomitant]
     Indication: HYPERTENSION
     Dosage: 1 DF, QD
     Route: 048
     Dates: end: 20080203
  7. POTASSIUM CHLORIDE [Concomitant]
     Indication: HYPOKALAEMIA
     Dosage: UNK
     Route: 048
     Dates: end: 20080203
  8. PROTHIADEN                              /NET/ [Concomitant]
     Indication: DEPRESSION
     Dosage: 1 DF, QD
     Route: 048
     Dates: end: 20080203
  9. TRAMADOL HCL [Concomitant]
     Indication: PAIN
     Dosage: 1 DF, QD
     Route: 048
     Dates: end: 20080202
  10. FORLAX [Concomitant]
     Indication: CONSTIPATION
     Dosage: 1 DF, QD
     Route: 048
     Dates: end: 20080203
  11. SECTRAL [Concomitant]
     Dosage: UNK
  12. PANTOPRAZOLE SODIUM [Concomitant]
     Dosage: UNK
  13. LORAZEPAM [Concomitant]
     Dosage: UNK
  14. PARACETAMOL [Concomitant]
     Dosage: UNK

REACTIONS (12)
  - ABDOMINAL TENDERNESS [None]
  - ANAEMIA [None]
  - BLOOD CREATININE INCREASED [None]
  - CONFUSIONAL STATE [None]
  - CREATININE RENAL CLEARANCE DECREASED [None]
  - GASTRIC ULCER [None]
  - HAEMATEMESIS [None]
  - HAEMOGLOBIN DECREASED [None]
  - HELICOBACTER INFECTION [None]
  - OESOPHAGITIS ULCERATIVE [None]
  - PNEUMONIA [None]
  - RENAL FAILURE ACUTE [None]
